FAERS Safety Report 7504229-5 (Version None)
Quarter: 2011Q2

REPORT INFORMATION
  Report Type: 
  Country: None (occurrence: None)
  Receive Date: 20110525
  Receipt Date: 20110513
  Transmission Date: 20111010
  Serious: Yes (Hospitalization, Other)
  Sender: FDA-Public Use
  Company Number: US-BAYER-201036634NA

PATIENT
  Age: 26 Year
  Sex: Female
  Weight: 81.633 kg

DRUGS (2)
  1. DROSPIRENONE AND ETHINYL ESTRADIOL [Suspect]
     Indication: CONTRACEPTION
     Dosage: UNK
     Route: 048
     Dates: start: 20081204, end: 20081218
  2. ANTIBIOTICS [Concomitant]
     Indication: PERITONITIS

REACTIONS (3)
  - INJURY [None]
  - CEREBROVASCULAR ACCIDENT [None]
  - ROAD TRAFFIC ACCIDENT [None]
